FAERS Safety Report 6699529-5 (Version None)
Quarter: 2010Q2

REPORT INFORMATION
  Report Type: 
  Country: None (occurrence: None)
  Receive Date: 20100427
  Receipt Date: 20100427
  Transmission Date: 20101027
  Serious: Yes (Hospitalization)
  Sender: FDA-Public Use
  Company Number: None

PATIENT
  Age: 60 Year
  Sex: Male

DRUGS (1)
  1. TOPROL-XL [Suspect]
     Indication: HEART RATE
     Dosage: TAKE 1 TABLET DAILY

REACTIONS (2)
  - MIGRAINE [None]
  - PALPITATIONS [None]
